FAERS Safety Report 13355865 (Version 1)
Quarter: 2017Q1

REPORT INFORMATION
  Report Type: Spontaneous
  Country: ES (occurrence: ES)
  Receive Date: 20170321
  Receipt Date: 20170321
  Transmission Date: 20170429
  Serious: Yes (Other)
  Sender: FDA-Public Use
  Company Number: ES-PFIZER INC-2017117230

PATIENT
  Age: 62 Year
  Sex: Female

DRUGS (2)
  1. ORFIDAL [Suspect]
     Active Substance: LORAZEPAM
     Dosage: UNK
  2. CHAMPIX [Suspect]
     Active Substance: VARENICLINE TARTRATE
     Dosage: UNK

REACTIONS (4)
  - Irritability [Unknown]
  - Nausea [Unknown]
  - Nightmare [Unknown]
  - Suicide attempt [Unknown]
